FAERS Safety Report 4613283-X (Version None)
Quarter: 2005Q1

REPORT INFORMATION
  Report Type: 
  Country: None (occurrence: None)
  Receive Date: 20050315
  Receipt Date: 20030320
  Transmission Date: 20050727
  Serious: No
  Sender: FDA-Public Use
  Company Number: 5037

PATIENT
  Age: 47 Year
  Sex: Female

DRUGS (5)
  1. MIDAZOLAM [Suspect]
     Dosage: 2 MG ONCE IV
     Route: 042
     Dates: start: 20020523, end: 20020523
  2. PROPOFOL [Suspect]
     Dosage: 200 MG ONCE IV
     Route: 042
     Dates: start: 20020523, end: 20020523
  3. SUCCINYLCHOLINE CHLORIDE [Suspect]
     Dosage: 100 MG ONCE IV
     Route: 042
     Dates: start: 20020523, end: 20020523
  4. MORPHINE SULFATE [Suspect]
     Dosage: 5 MG ONCE IV
     Route: 042
     Dates: start: 20020523, end: 20020523
  5. FENTANYL [Suspect]
     Dosage: IV
     Route: 042
     Dates: start: 20020523, end: 20020523

REACTIONS (3)
  - ATRIOVENTRICULAR BLOCK SECOND DEGREE [None]
  - HYPOTENSION [None]
  - NODAL ARRHYTHMIA [None]
